FAERS Safety Report 9559325 (Version 2)
Quarter: 2014Q1

REPORT INFORMATION
  Report Type: Spontaneous
  Country: US (occurrence: None)
  Receive Date: 20130906
  Receipt Date: 20131205
  Transmission Date: 20141002
  Serious: No
  Sender: FDA-Public Use
  Company Number: 163-POMAL-13052440

PATIENT
  Age: 86 Year
  Sex: Male
  Weight: 74.8 kg

DRUGS (29)
  1. POMALYST (POMALIDOMIDE) (CAPSULES) [Suspect]
     Indication: PLASMA CELL MYELOMA
     Dosage: 1 IN 2 D
     Route: 048
     Dates: start: 20130422, end: 2013
  2. CENTRUM MULTIVITAMINS (MULTIVITAMINS) (CHEWABLE TABLET) [Concomitant]
  3. PROSCAR (FINASTERIDE) (TABLETS) [Concomitant]
  4. ROPINIROLE HCL (ROPINIROLE HYDROCHLORIDE) (TABLETS) [Concomitant]
  5. NITROSTAT (GLYCERYL TRINITRATE) (TABLETS) [Concomitant]
  6. BUSPIRONE (BUSPIRONE) (TABLETS) [Concomitant]
  7. BUMETANIDE (BUMETANIDE) [Suspect]
     Indication: PRODUCT USED FOR UNKNOWN INDICATION
     Route: 048
  8. DIGOXIN (DIGOXIN) (TABLETS) [Concomitant]
  9. LISINOPRIL (LISINOPRIL) (TABLETS) [Concomitant]
  10. ISOSORBIDE (ISOSORBIDE) (TABLETS) [Concomitant]
  11. GABAPENTIN (GABAPENTIN) (CAPSULES) [Concomitant]
  12. VITAMIN D (ERGOCALCIFEROL) (UNKNOWN) [Concomitant]
  13. METOPROLOL SUCC ER (METOPROLOL SUCCINATE) (UNKNOWN) [Concomitant]
  14. CRESTOR (ROSUVASTATIN) (TABLETS) [Concomitant]
  15. WARFARIN SODIUM (WARFARIN SODIUM) (UNKNOWN) [Concomitant]
  16. FLOMAX (TAMSULOSIN HYDROCHLORIDE) (UNKNOWN) [Concomitant]
  17. VITAMIN B12 (CYANOCOBALAMIN) (UNKNOWN) [Concomitant]
  18. ASPIRIN (ACETYSALICYLIC ACID) (UNKNOWN) [Concomitant]
  19. CALCIUM + VITAMIN D (LEKOVIT CA) (UNKNOWN) [Concomitant]
  20. OMEPRAZOLE (OMEPRAZOLE) (UNKNOWN) [Concomitant]
  21. SULFAMETHOXAZOLE-TMP (TABLETS) [Concomitant]
  22. HYDROCODONE-ACETAMINOPHEN (UNKNOWN) [Concomitant]
  23. NYSTATIN (NYSTATIN) (SUSPENSION) [Concomitant]
  24. ZOLPIDEM TARTRATE (ZOLPIDEM TARTRATE) (TABLETS) [Concomitant]
  25. AMLODIPINE BESYLATE (AMLODIPINE BESILATE) (TABLETS) [Concomitant]
  26. FUROSEMIDE [Suspect]
     Indication: PRODUCT USED FOR UNKNOWN INDICATION
     Route: 048
  27. CEPHALEXIN (CEFALEXIN) (TABLETS) [Concomitant]
  28. CIPROFLOXACIN HCL (CIPROFLOXACIN HYDROCHLORIDE) (TABLETS) [Concomitant]
  29. PREDNISONE [Suspect]
     Indication: RASH
     Dosage: 14 IN 14 D
     Route: 048
     Dates: start: 2013

REACTIONS (2)
  - Pollakiuria [None]
  - Rash [None]
